FAERS Safety Report 25318974 (Version 1)
Quarter: 2025Q2

REPORT INFORMATION
  Report Type: Spontaneous
  Country: TR (occurrence: TR)
  Receive Date: 20250515
  Receipt Date: 20250515
  Transmission Date: 20250717
  Serious: Yes (Hospitalization)
  Sender: MYLAN
  Company Number: TR-MYLANLABS-2025M1041550

PATIENT
  Age: 16 Year
  Sex: Female

DRUGS (8)
  1. ALPRAZOLAM [Suspect]
     Active Substance: ALPRAZOLAM
     Indication: Psychotic disorder
     Dosage: 1 MILLIGRAM, QD
  2. ALPRAZOLAM [Suspect]
     Active Substance: ALPRAZOLAM
     Indication: Dissociative disorder
     Dosage: 1.5 MILLIGRAM, QD
  3. RISPERIDONE [Suspect]
     Active Substance: RISPERIDONE
     Indication: Psychotic disorder
     Dosage: 1 MILLIGRAM, QD
  4. RISPERIDONE [Suspect]
     Active Substance: RISPERIDONE
     Indication: Dissociative disorder
     Dosage: 4 MILLIGRAM, QD
  5. RISPERIDONE [Suspect]
     Active Substance: RISPERIDONE
     Dosage: 6 MILLIGRAM, QD (DOSE WAS INCREASED)
  6. RISPERIDONE [Suspect]
     Active Substance: RISPERIDONE
     Dosage: 3 MILLIGRAM, QD (URTHER REDUCED TO 3MG DAILY AND EVENTUALLY DISCONTINUED)
  7. VALPROATE SODIUM [Suspect]
     Active Substance: VALPROATE SODIUM
     Indication: Psychotic disorder
     Dosage: 250 MILLIGRAM, QD
  8. VALPROATE SODIUM [Suspect]
     Active Substance: VALPROATE SODIUM
     Indication: Dissociative disorder
     Dosage: 1000 MILLIGRAM, QD

REACTIONS (1)
  - Drug ineffective [Unknown]
